FAERS Safety Report 7909901-0 (Version None)
Quarter: 2011Q4

REPORT INFORMATION
  Report Type: 
  Country: None (occurrence: None)
  Receive Date: 20111111
  Receipt Date: 20111028
  Transmission Date: 20120403
  Serious: Yes (Other)
  Sender: FDA-Public Use
  Company Number: US-ENDO PHARMACEUTICALS INC.-PRED20110144

PATIENT
  Sex: Male
  Weight: 110.32 kg

DRUGS (14)
  1. ASPIRIN [Concomitant]
     Indication: PRODUCT USED FOR UNKNOWN INDICATION
     Route: 048
     Dates: start: 20110901
  2. COLCRYS [Suspect]
     Indication: GOUT
     Route: 048
     Dates: start: 20111025, end: 20111025
  3. AMLODIPINE [Concomitant]
     Indication: BLOOD PRESSURE INCREASED
     Route: 048
  4. ROSUVASTATIN [Concomitant]
     Indication: BLOOD CHOLESTEROL
     Route: 048
  5. CYAMOCOBALAMIN [Concomitant]
     Indication: ANAEMIA
     Dosage: 1000 MG
     Route: 048
  6. FUROSEMIDE [Concomitant]
     Indication: PRODUCT USED FOR UNKNOWN INDICATION
     Route: 048
  7. COLCRYS [Suspect]
     Route: 048
     Dates: start: 20111026
  8. INSULIN [Concomitant]
     Indication: DIABETES MELLITUS
     Dosage: UNK
     Route: 058
  9. LISINOPRIL [Concomitant]
     Indication: BLOOD PRESSURE INCREASED
     Route: 048
  10. VITAMIN D [Concomitant]
     Indication: PRODUCT USED FOR UNKNOWN INDICATION
     Dosage: 5000 IU
     Route: 048
  11. NIACIN [Concomitant]
     Indication: BLOOD CHOLESTEROL
     Route: 048
  12. TERAZOSIN HCL [Concomitant]
     Indication: PRODUCT USED FOR UNKNOWN INDICATION
     Route: 048
  13. PREDNISONE TAB [Suspect]
     Indication: INFLAMMATION
     Route: 048
     Dates: start: 20111025, end: 20111025
  14. ATENOLOL [Concomitant]
     Indication: BLOOD PRESSURE INCREASED
     Route: 048

REACTIONS (2)
  - SWELLING FACE [None]
  - EYELID OEDEMA [None]
